FAERS Safety Report 9979176 (Version 2)
Quarter: 2014Q1

REPORT INFORMATION
  Report Type: Report from Study
  Country: CA (occurrence: CA)
  Receive Date: 20140306
  Receipt Date: 20140306
  Transmission Date: 20141002
  Serious: Yes (Other)
  Sender: FDA-Public Use
  Company Number: CA-ROCHE-1137358

PATIENT
  Sex: Female
  Weight: 70.37 kg

DRUGS (7)
  1. XELODA [Suspect]
     Indication: COLORECTAL CANCER METASTATIC
     Route: 048
     Dates: start: 201206
  2. XELODA [Suspect]
     Indication: GASTROINTESTINAL CARCINOMA
     Route: 048
     Dates: start: 201306, end: 201309
  3. CARBAMAZEPINE [Concomitant]
  4. LORAZEPAM [Concomitant]
  5. ELAVIL (AMITRIPTYLINE HYDROCHLORIDE) [Concomitant]
  6. RABEPRAZOLE [Concomitant]
  7. ROSUVASTATIN [Concomitant]

REACTIONS (6)
  - Liver disorder [Unknown]
  - Cheilitis [Not Recovered/Not Resolved]
  - Lip pain [Not Recovered/Not Resolved]
  - Diarrhoea [Unknown]
  - Fatigue [Unknown]
  - Off label use [Unknown]
